FAERS Safety Report 6405429-8 (Version None)
Quarter: 2009Q4

REPORT INFORMATION
  Report Type: 
  Country: None (occurrence: None)
  Receive Date: 20091019
  Receipt Date: 20091012
  Transmission Date: 20100525
  Serious: Yes (Other)
  Sender: FDA-Public Use
  Company Number: US-BAYER-200936069NA

PATIENT
  Sex: Female

DRUGS (1)
  1. MIRENA [Suspect]
     Indication: DRUG USE FOR UNKNOWN INDICATION
     Dosage: CONTINUOUS DELIVERY
     Route: 015

REACTIONS (7)
  - BREAST CANCER [None]
  - BREAST INFECTION [None]
  - BREAST PAIN [None]
  - BREAST SWELLING [None]
  - INFLAMMATION [None]
  - SKIN DISCOLOURATION [None]
  - TENDERNESS [None]
